FAERS Safety Report 4674134-0 (Version None)
Quarter: 2005Q2

REPORT INFORMATION
  Report Type: 
  Country: None (occurrence: None)
  Receive Date: 20050526
  Receipt Date: 20050513
  Transmission Date: 20051028
  Serious: Yes (Other)
  Sender: FDA-Public Use
  Company Number: GB-JNJFOC-20050503492

PATIENT
  Sex: Female
  Weight: 55 kg

DRUGS (6)
  1. REMICADE [Suspect]
     Dosage: 3 MG/KG
     Route: 042
  2. GOLD [Concomitant]
  3. CELEBREX [Concomitant]
  4. CO-PROXAMOL [Concomitant]
  5. CO-PROXAMOL [Concomitant]
  6. CITALOPRAM [Concomitant]

REACTIONS (1)
  - BREAST CANCER [None]
